FAERS Safety Report 25143958 (Version 1)
Quarter: 2025Q2

REPORT INFORMATION
  Report Type: Spontaneous
  Country: CN (occurrence: CN)
  Receive Date: 20250401
  Receipt Date: 20250401
  Transmission Date: 20250717
  Serious: Yes (Hospitalization)
  Sender: EPIC PHARM
  Company Number: CN-EPICPHARMA-CN-2025EPCLIT00339

PATIENT
  Age: 14 Year
  Sex: Male
  Weight: 50 kg

DRUGS (8)
  1. VORICONAZOLE [Suspect]
     Active Substance: VORICONAZOLE
     Indication: Pneumonia fungal
     Route: 042
  2. VORICONAZOLE [Suspect]
     Active Substance: VORICONAZOLE
     Route: 042
  3. VORICONAZOLE [Suspect]
     Active Substance: VORICONAZOLE
     Route: 048
  4. VORICONAZOLE [Suspect]
     Active Substance: VORICONAZOLE
     Route: 048
  5. TRETINOIN [Suspect]
     Active Substance: TRETINOIN
     Indication: Acute promyelocytic leukaemia
     Route: 065
  6. ARSENIC TRIIODIDE [Concomitant]
     Active Substance: ARSENIC TRIIODIDE
     Route: 065
  7. CEFOPERAZONE SODIUM\SULBACTAM [Concomitant]
     Active Substance: CEFOPERAZONE SODIUM\SULBACTAM
     Route: 065
  8. ONDANSETRON [Concomitant]
     Active Substance: ONDANSETRON
     Indication: Vomiting
     Route: 065

REACTIONS (2)
  - Hypercalcaemia [Recovered/Resolved]
  - Drug interaction [Unknown]
